FAERS Safety Report 5444369-8 (Version None)
Quarter: 2007Q3

REPORT INFORMATION
  Report Type: 
  Country: None (occurrence: None)
  Receive Date: 20070831
  Receipt Date: 20061117
  Transmission Date: 20080115
  Serious: Yes (Hospitalization)
  Sender: FDA-Public Use
  Company Number: 8019740

PATIENT
  Age: 28 Year
  Sex: Male
  Weight: 70 kg

DRUGS (4)
  1. XUSAL [Suspect]
     Dosage: 50 MG ONCE PO
     Route: 048
  2. TEGRETOL [Suspect]
     Dosage: 12000 MG ONCE PO
     Route: 048
  3. THEOPHYLLINE [Suspect]
     Dosage: 3000 MG ONCE PO
     Route: 048
  4. ALCOHOL [Suspect]
     Dosage: ONCE PO
     Route: 048

REACTIONS (10)
  - AGGRESSION [None]
  - AGITATION [None]
  - ALCOHOL USE [None]
  - CONFUSIONAL STATE [None]
  - ILL-DEFINED DISORDER [None]
  - INCORRECT DOSE ADMINISTERED [None]
  - SKIN LACERATION [None]
  - SOMNOLENCE [None]
  - SUICIDE ATTEMPT [None]
  - TACHYCARDIA [None]
